FAERS Safety Report 9004002 (Version 1)
Quarter: 2013Q1

REPORT INFORMATION
  Report Type: Spontaneous
  Country: AR (occurrence: AR)
  Receive Date: 20130108
  Receipt Date: 20130108
  Transmission Date: 20140127
  Serious: Yes (Hospitalization)
  Sender: FDA-Public Use
  Company Number: PHHY2013AR001701

PATIENT
  Age: 47 Year
  Sex: Male

DRUGS (2)
  1. TRILEPTAL [Suspect]
     Indication: EPILEPSY
     Dosage: 2 DF (600 MG) DAILY
     Route: 048
  2. TRILEPTAL [Suspect]
     Dosage: 3 DF (600 MG) DAILY
     Route: 048

REACTIONS (4)
  - Road traffic accident [Recovering/Resolving]
  - Malaise [Recovering/Resolving]
  - Musculoskeletal chest pain [Recovering/Resolving]
  - Head injury [Recovering/Resolving]
